FAERS Safety Report 5325621-3 (Version None)
Quarter: 2007Q2

REPORT INFORMATION
  Report Type: 
  Country: None (occurrence: None)
  Receive Date: 20070515
  Receipt Date: 20070504
  Transmission Date: 20071010
  Serious: Yes (Other)
  Sender: FDA-Public Use
  Company Number: US-ELI_LILLY_AND_COMPANY-US200705001383

PATIENT
  Age: 47 Year
  Sex: Female

DRUGS (5)
  1. CYMBALTA [Suspect]
     Indication: FIBROMYALGIA
     Dosage: 30 MG, DAILY (1/D)
     Dates: start: 20070301, end: 20070101
  2. CYMBALTA [Suspect]
     Dosage: 60 MG, DAILY (1/D)
     Dates: start: 20070101, end: 20070101
  3. CYMBALTA [Suspect]
     Dosage: 30 MG, UNK
     Dates: start: 20070504
  4. DEPO-PROVERA [Concomitant]
     Dosage: UNK, OTHER
  5. BETA BLOCKING AGENTS [Concomitant]

REACTIONS (11)
  - ANXIETY [None]
  - COLD SWEAT [None]
  - DISCOMFORT [None]
  - DIZZINESS [None]
  - DRUG WITHDRAWAL SYNDROME [None]
  - FEELING ABNORMAL [None]
  - HEAD DISCOMFORT [None]
  - HEADACHE [None]
  - HYPERTENSION [None]
  - PALPITATIONS [None]
  - SLEEP DISORDER [None]
